FAERS Safety Report 25211520 (Version 6)
Quarter: 2025Q4

REPORT INFORMATION
  Report Type: Spontaneous
  Country: US (occurrence: US)
  Receive Date: 20250418
  Receipt Date: 20251013
  Transmission Date: 20260117
  Serious: No
  Sender: ROCHE
  Company Number: US-ROCHE-10000256843

PATIENT
  Age: 32 Year
  Sex: Female
  Weight: 113.4 kg

DRUGS (4)
  1. XOLAIR PFS [Suspect]
     Active Substance: OMALIZUMAB
     Indication: Urticaria
     Dosage: STRENGTH: 300MG/2ML
     Route: 058
     Dates: start: 202404
  2. XOLAIR PFS [Suspect]
     Active Substance: OMALIZUMAB
     Indication: Dermatitis atopic
  3. HAEGARDA [Concomitant]
     Active Substance: HUMAN C1-ESTERASE INHIBITOR
     Dosage: INJECT 6000 UNITS (12 ML) UNDER THE SKIN 2 TIMES A WEEK (EVERY 3 TO 4 DAYS).
  4. HEPARIN [Concomitant]
     Active Substance: HEPARIN SODIUM

REACTIONS (10)
  - Off label use [Unknown]
  - Injection site erythema [Unknown]
  - Injection site swelling [Unknown]
  - Urticaria [Unknown]
  - Injection site irritation [Unknown]
  - Ill-defined disorder [Unknown]
  - Laryngeal disorder [Unknown]
  - Weight increased [Unknown]
  - Off label use [Unknown]
  - Weight decreased [Unknown]

NARRATIVE: CASE EVENT DATE: 20250630
